FAERS Safety Report 17220114 (Version 3)
Quarter: 2024Q3

REPORT INFORMATION
  Report Type: Report from Study
  Country: FR (occurrence: FR)
  Receive Date: 20191231
  Receipt Date: 20240726
  Transmission Date: 20241017
  Serious: Yes (Death, Hospitalization, Other)
  Sender: MYLAN
  Company Number: FR-TAKEDA-2016MPI005767

PATIENT
  Age: 56 Year
  Sex: Female
  Weight: 61 kg

DRUGS (15)
  1. GEMCITABINE [Suspect]
     Active Substance: GEMCITABINE
     Indication: Hodgkin^s disease
     Dosage: UNK
     Route: 065
  2. VINORELBINE [Suspect]
     Active Substance: VINORELBINE TARTRATE
     Indication: Hodgkin^s disease
     Dosage: UNK
     Route: 065
  3. DOXORUBICIN HYDROCHLORIDE [Suspect]
     Active Substance: DOXORUBICIN HYDROCHLORIDE
     Indication: Hodgkin^s disease
     Dosage: UNK
     Route: 065
  4. BRENTUXIMAB VEDOTIN [Suspect]
     Active Substance: BRENTUXIMAB VEDOTIN
     Indication: Hodgkin^s disease
     Dosage: 100 MILLIGRAM (100 MG WITH 2 BOTTLES)
     Route: 065
     Dates: start: 20150914, end: 20151026
  5. BACTRIM [Concomitant]
     Active Substance: SULFAMETHOXAZOLE\TRIMETHOPRIM
     Indication: Product used for unknown indication
     Dosage: 400 MILLIGRAM, QD (400 MG, 1X/DAY)
     Route: 065
  6. ACETAMINOPHEN [Concomitant]
     Active Substance: ACETAMINOPHEN
     Indication: Pyrexia
     Dosage: 1 GRAM, QID (1 G, 4X/DAY)
     Route: 065
  7. ACETAMINOPHEN [Concomitant]
     Active Substance: ACETAMINOPHEN
     Dosage: 1 GRAM, QD
     Route: 065
  8. PRIMPERAN [Concomitant]
     Active Substance: METOCLOPRAMIDE HYDROCHLORIDE
     Indication: Product used for unknown indication
     Dosage: 30 MILLIGRAM, TID (30 MG 3 TIMES PER DAY)
     Route: 065
  9. DUPHALAC [Concomitant]
     Active Substance: LACTULOSE
     Indication: Constipation
     Dosage: 2 DOSAGE FORM, QD (2 SACHETS PER DAY IN THE MORNING IF CONSTIPATION)
     Route: 065
  10. MOPROL [Concomitant]
     Indication: Product used for unknown indication
     Dosage: 20 MILLIGRAM, QD
     Route: 065
  11. LEVOTHYROXINE [Concomitant]
     Active Substance: LEVOTHYROXINE\LEVOTHYROXINE SODIUM
     Indication: Product used for unknown indication
     Dosage: 100 MICROGRAM, QD (100 UG, 1X/DAY)
     Route: 065
  12. VALACYCLOVIR HYDROCHLORIDE [Concomitant]
     Active Substance: VALACYCLOVIR HYDROCHLORIDE
     Indication: Product used for unknown indication
     Dosage: 500 MILLIGRAM, QD (500 MG, 1X/DAY)
     Route: 065
  13. OMEPRAZOLE [Concomitant]
     Active Substance: OMEPRAZOLE
     Indication: Product used for unknown indication
     Dosage: 20 MILLIGRAM, QD
     Route: 065
  14. MOSAPRIDE CITRATE [Concomitant]
     Active Substance: MOSAPRIDE CITRATE
     Indication: Product used for unknown indication
     Dosage: 20 MILLIGRAM, QD
     Route: 065
  15. OMEPRAZOLE [Concomitant]
     Active Substance: OMEPRAZOLE
     Indication: Product used for unknown indication
     Dosage: 20 MILLIGRAM, QD (20 MG, 1X/DAY)
     Route: 065

REACTIONS (8)
  - Neoplasm progression [Fatal]
  - Ascites [Fatal]
  - Pancytopenia [Fatal]
  - Bronchopulmonary aspergillosis [Fatal]
  - Venoocclusive disease [Fatal]
  - Mucosal inflammation [Fatal]
  - Confusional state [Fatal]
  - Off label use [Unknown]

NARRATIVE: CASE EVENT DATE: 20151215
